FAERS Safety Report 4523712-8 (Version None)
Quarter: 2004Q4

REPORT INFORMATION
  Report Type: 
  Country: None (occurrence: None)
  Receive Date: 20041208
  Receipt Date: 20041125
  Transmission Date: 20050328
  Serious: No
  Sender: FDA-Public Use
  Company Number: 2004AC00869

PATIENT
  Age: 10 Year
  Sex: Male

DRUGS (6)
  1. QUETIAPINE [Suspect]
     Indication: ABNORMAL BEHAVIOUR
     Dosage: 400 MG DAILY PO
     Route: 048
  2. QUETIAPINE [Suspect]
     Indication: ABNORMAL BEHAVIOUR
     Dosage: 250 MG BID PO
     Route: 048
  3. LUVOX [Concomitant]
  4. LITHIUM [Concomitant]
  5. DOCUSATE [Concomitant]
  6. IMIPRAM TAB [Concomitant]

REACTIONS (3)
  - DRUG INTERACTION [None]
  - LABORATORY TEST ABNORMAL [None]
  - LABORATORY TEST INTERFERENCE [None]
